FAERS Safety Report 23826819 (Version 2)
Quarter: 2024Q2

REPORT INFORMATION
  Report Type: Spontaneous
  Country: CN (occurrence: CN)
  Receive Date: 20240507
  Receipt Date: 20240603
  Transmission Date: 20240716
  Serious: Yes (Life-Threatening, Hospitalization)
  Sender: FDA-Public Use
  Company Number: CN-Eisai-EC-2024-165265

PATIENT
  Age: 52 Year
  Sex: Female
  Weight: 38 kg

DRUGS (2)
  1. ERIBULIN [Suspect]
     Active Substance: ERIBULIN
     Indication: Breast cancer
     Route: 042
     Dates: start: 20240418
  2. BEVACIZUMAB [Suspect]
     Active Substance: BEVACIZUMAB
     Indication: Breast cancer
     Dosage: FREQUENCY UNKNOWN
     Route: 042
     Dates: start: 20240418

REACTIONS (1)
  - Myelosuppression [Recovering/Resolving]

NARRATIVE: CASE EVENT DATE: 20240427
